FAERS Safety Report 19133229 (Version 4)
Quarter: 2021Q4

REPORT INFORMATION
  Report Type: Spontaneous
  Country: AR (occurrence: AR)
  Receive Date: 20210413
  Receipt Date: 20211012
  Transmission Date: 20220303
  Serious: Yes (Other)
  Sender: FDA-Public Use
  Company Number: AR-PFIZER INC-2021273963

PATIENT
  Age: 61 Year
  Sex: Male

DRUGS (1)
  1. ENBREL [Suspect]
     Active Substance: ETANERCEPT
     Indication: Psoriatic arthropathy
     Dosage: 50 MG, EVERY 20 DAYS
     Route: 065
     Dates: start: 20110913, end: 202103

REACTIONS (2)
  - Pneumonia fungal [Unknown]
  - Off label use [Unknown]

NARRATIVE: CASE EVENT DATE: 20110913
